FAERS Safety Report 9061577 (Version 1)
Quarter: 2012Q4

REPORT INFORMATION
  Report Type: Spontaneous
  Country: US (occurrence: None)
  Receive Date: 20120910
  Receipt Date: 20120910
  Transmission Date: 20130627
  Serious: Yes (Death)
  Sender: FDA-Public Use
  Company Number: M-09-020

PATIENT
  Age: 85 Year
  Sex: Female

DRUGS (3)
  1. DIGOXIN [Suspect]
     Route: 048
     Dates: start: 20080512, end: 20090408
  2. NITROGLYCERINE [Concomitant]
  3. LISPIRNELL [Concomitant]

REACTIONS (3)
  - Nausea [None]
  - Cardioactive drug level increased [None]
  - Toxicity to various agents [None]
